FAERS Safety Report 9858167 (Version 4)
Quarter: 2014Q1

REPORT INFORMATION
  Report Type: Spontaneous
  Country: JP (occurrence: JP)
  Receive Date: 20140131
  Receipt Date: 20140213
  Transmission Date: 20141002
  Serious: Yes (Other)
  Sender: FDA-Public Use
  Company Number: JP-TEVA-451142ISR

PATIENT
  Sex: Female

DRUGS (16)
  1. FUROSEMIDE,TAB,40MG [Suspect]
     Indication: OEDEMA
     Dosage: 40 MILLIGRAM DAILY;
     Route: 048
     Dates: start: 20131121, end: 20131210
  2. THYRADIN-S TABLETS, 50MCG [Concomitant]
     Indication: HYPOTHYROIDISM
     Dosage: 50 MICROGRAM DAILY;
     Route: 048
  3. NEOMALLERMIN-TR,SRT,6MG [Concomitant]
     Indication: HYPOTHYROIDISM
     Dosage: 12 MILLIGRAM DAILY;
     Route: 048
  4. EURODIN 2MG TABLETS [Concomitant]
     Dosage: 2 MILLIGRAM DAILY;
     Route: 048
  5. LAC-B GRANULAR POWDER N [Concomitant]
     Dosage: 3 GRAM DAILY;
     Route: 048
  6. ALOSENN,GRA [Concomitant]
     Dosage: 2 GRAM DAILY;
     Route: 048
  7. CELTECT TABLETS 30 [Concomitant]
     Dosage: 60 MILLIGRAM DAILY;
     Route: 048
  8. LOXONIN TABLETS,60MG [Concomitant]
     Dosage: 120 MILLIGRAM DAILY;
     Route: 048
  9. FERRUM CAPSULES,100MG [Concomitant]
     Dosage: 100 MILLIGRAM DAILY;
     Route: 048
  10. BENET TABLETS 17.5MG [Concomitant]
     Indication: OSTEOPOROSIS
     Route: 048
  11. MAGMITT TAB.330 [Concomitant]
     Dosage: 1320 MILLIGRAM DAILY;
     Route: 048
  12. ETIZOLAM TABLETS 0.5MG [Concomitant]
     Dosage: 1 MILLIGRAM DAILY;
     Route: 048
  13. CRESTOR TABLETS 2.5MG [Concomitant]
     Indication: HYPERLIPIDAEMIA
     Dosage: 2.5 MILLIGRAM DAILY;
     Route: 048
  14. RIVOTRIL,TAB,0.5MG [Concomitant]
     Dosage: .5 MILLIGRAM DAILY;
     Route: 048
  15. RABEPRAZOLE NA TABLETS 10MG OHARA [Concomitant]
     Dosage: 10 MILLIGRAM DAILY;
     Route: 048
  16. D-ALFA,CAP,1MCG [Concomitant]
     Indication: OSTEOPOROSIS
     Dosage: 1 MICROGRAM DAILY;
     Route: 048

REACTIONS (3)
  - Urine output decreased [Recovered/Resolved]
  - Drug effect decreased [Unknown]
  - Product substitution issue [Unknown]
